FAERS Safety Report 6783779-3 (Version None)
Quarter: 2010Q2

REPORT INFORMATION
  Report Type: 
  Country: None (occurrence: None)
  Receive Date: 20100622
  Receipt Date: 20100617
  Transmission Date: 20101027
  Serious: Yes (Other)
  Sender: FDA-Public Use
  Company Number: DE-BAYER-201029487GPV

PATIENT
  Age: 11 Year
  Sex: Male
  Weight: 45 kg

DRUGS (1)
  1. MAGNEVIST [Suspect]
     Indication: CEREBRAL DISORDER
     Dosage: AS USED: 6 ML
     Route: 042
     Dates: start: 20100531

REACTIONS (4)
  - CARDIOVASCULAR INSUFFICIENCY [None]
  - DIZZINESS [None]
  - NAUSEA [None]
  - VOMITING [None]
